FAERS Safety Report 9632996 (Version 2)
Quarter: 2013Q4

REPORT INFORMATION
  Report Type: Report from Study
  Country: DE (occurrence: DE)
  Receive Date: 20131018
  Receipt Date: 20131029
  Transmission Date: 20140711
  Serious: Yes (Hospitalization)
  Sender: FDA-Public Use
  Company Number: DE-ABBVIE-13P-062-1157178-00

PATIENT
  Sex: Male

DRUGS (3)
  1. HUMIRA [Suspect]
     Indication: ANKYLOSING SPONDYLITIS
     Route: 058
     Dates: start: 20130805
  2. HUMIRA [Suspect]
     Dosage: FOR 3 INJECTIONS
     Route: 058
  3. HUMIRA [Suspect]
     Route: 058

REACTIONS (1)
  - Tendonitis [Not Recovered/Not Resolved]
